FAERS Safety Report 13524965 (Version 1)
Quarter: 2017Q2

REPORT INFORMATION
  Report Type: Spontaneous
  Country: US (occurrence: US)
  Receive Date: 20170508
  Receipt Date: 20170508
  Transmission Date: 20170830
  Serious: No
  Sender: FDA-Public Use
  Company Number: US-ROCHE-1102260

PATIENT
  Sex: Male

DRUGS (8)
  1. 5-FLUOROURACIL [Concomitant]
     Active Substance: FLUOROURACIL
  2. IRINOTECAN [Concomitant]
     Active Substance: IRINOTECAN
  3. OXALIPLATIN. [Concomitant]
     Active Substance: OXALIPLATIN
  4. ERBITUX [Concomitant]
     Active Substance: CETUXIMAB
  5. PREDNISONE. [Concomitant]
     Active Substance: PREDNISONE
  6. XELODA [Concomitant]
     Active Substance: CAPECITABINE
  7. LEUCOVORIN. [Concomitant]
     Active Substance: LEUCOVORIN
  8. AVASTIN [Suspect]
     Active Substance: BEVACIZUMAB
     Indication: COLON CANCER
     Route: 065

REACTIONS (1)
  - Drug intolerance [Unknown]
